FAERS Safety Report 5056147-2 (Version None)
Quarter: 2006Q3

REPORT INFORMATION
  Report Type: 
  Country: None (occurrence: None)
  Receive Date: 20060720
  Receipt Date: 20060630
  Transmission Date: 20061208
  Serious: Yes (Other)
  Sender: FDA-Public Use
  Company Number: IT-GLAXOSMITHKLINE-B0429995A

PATIENT
  Age: 60 Year
  Sex: Male

DRUGS (2)
  1. AVANDIA [Suspect]
     Indication: DIABETES MELLITUS
     Route: 048
     Dates: start: 20050112
  2. INSULIN [Concomitant]
     Dates: end: 20050112

REACTIONS (5)
  - DIABETIC RETINOPATHY [None]
  - MACULAR OEDEMA [None]
  - PHOTOCOAGULATION [None]
  - RETINAL CYST [None]
  - RETINAL OEDEMA [None]
